FAERS Safety Report 24292447 (Version 4)
Quarter: 2025Q1

REPORT INFORMATION
  Report Type: Spontaneous
  Country: ES (occurrence: ES)
  Receive Date: 20240906
  Receipt Date: 20250225
  Transmission Date: 20250408
  Serious: Yes (Other)
  Sender: Kenvue
  Company Number: None

PATIENT

DRUGS (8)
  1. LOPERAMIDE HYDROCHLORIDE [Suspect]
     Active Substance: LOPERAMIDE HYDROCHLORIDE
     Indication: Diarrhoea
     Dosage: 1 DOSAGE FORM, DAILY
     Route: 065
  2. ABEMACICLIB [Suspect]
     Active Substance: ABEMACICLIB
     Indication: Breast cancer metastatic
     Route: 048
     Dates: start: 202207
  3. ABEMACICLIB [Suspect]
     Active Substance: ABEMACICLIB
     Route: 048
  4. ABEMACICLIB [Suspect]
     Active Substance: ABEMACICLIB
     Route: 048
  5. ABEMACICLIB [Suspect]
     Active Substance: ABEMACICLIB
     Route: 048
  6. ABEMACICLIB [Suspect]
     Active Substance: ABEMACICLIB
     Route: 048
  7. MAGNESIUM [Suspect]
     Active Substance: MAGNESIUM
     Indication: Gait disturbance
     Route: 065
  8. LETROZOLE [Concomitant]
     Active Substance: LETROZOLE
     Indication: Breast cancer metastatic
     Route: 065

REACTIONS (35)
  - Malignant neoplasm progression [Recovering/Resolving]
  - Pulmonary oedema [Recovered/Resolved]
  - Haemorrhoid infection [Unknown]
  - Haemorrhoidal haemorrhage [Recovering/Resolving]
  - Anaemia [Recovered/Resolved]
  - Oral fungal infection [Recovering/Resolving]
  - Proctalgia [Recovering/Resolving]
  - Anal fissure [Recovered/Resolved]
  - Diarrhoea [Recovered/Resolved]
  - Haemorrhoids [Recovered/Resolved]
  - Irritable bowel syndrome [Recovering/Resolving]
  - Visual impairment [Recovering/Resolving]
  - Gait disturbance [Not Recovered/Not Resolved]
  - Lacrimation increased [Recovering/Resolving]
  - Back pain [Recovering/Resolving]
  - Discomfort [Recovered/Resolved]
  - Seasonal allergy [Unknown]
  - Anal pruritus [Recovering/Resolving]
  - Urinary tract infection [Recovered/Resolved]
  - Sleep disorder due to general medical condition, insomnia type [Recovering/Resolving]
  - Pollakiuria [Recovering/Resolving]
  - Micturition urgency [Recovering/Resolving]
  - Weight decreased [Recovering/Resolving]
  - Feeling abnormal [Unknown]
  - Feeding disorder [Recovering/Resolving]
  - Increased appetite [Recovering/Resolving]
  - Pleural effusion [Recovering/Resolving]
  - Constipation [Recovering/Resolving]
  - Abdominal pain [Recovering/Resolving]
  - Fatigue [Recovered/Resolved]
  - Fatigue [Recovering/Resolving]
  - Muscle spasms [Recovered/Resolved]
  - Hypoaesthesia [Recovering/Resolving]
  - Diarrhoea [Recovering/Resolving]
  - Blood cholesterol increased [Recovering/Resolving]

NARRATIVE: CASE EVENT DATE: 20220701
